FAERS Safety Report 6544277-5 (Version None)
Quarter: 2010Q1

REPORT INFORMATION
  Report Type: 
  Country: None (occurrence: None)
  Receive Date: 20100115
  Receipt Date: 20100105
  Transmission Date: 20100710
  Serious: Yes (Death)
  Sender: FDA-Public Use
  Company Number: 008183

PATIENT
  Age: 1 Year

DRUGS (4)
  1. BUSULFEX [Suspect]
     Indication: STEM CELL TRANSPLANT
     Dates: start: 19980101
  2. ANTI-THYMOCYTE GLOBULIN NOS [Concomitant]
  3. THIOTEPA [Concomitant]
  4. FLUDARABINE PHOSPHATE [Concomitant]

REACTIONS (2)
  - ENCEPHALOPATHY [None]
  - TRANSPLANT FAILURE [None]
